FAERS Safety Report 8489680-1 (Version None)
Quarter: 2012Q2

REPORT INFORMATION
  Report Type: 
  Country: None (occurrence: None)
  Receive Date: 20120626
  Receipt Date: 20120615
  Transmission Date: 20120825
  Serious: Yes (Death, Hospitalization, Other)
  Sender: FDA-Public Use
  Company Number: ADR-2012-01161

PATIENT
  Age: 69 Year
  Sex: Male

DRUGS (1)
  1. BACLOFEN [Suspect]

REACTIONS (11)
  - ALTERED STATE OF CONSCIOUSNESS [None]
  - EPISTAXIS [None]
  - RESPIRATORY FAILURE [None]
  - SHOCK [None]
  - TUBERCULOSIS [None]
  - DEHYDRATION [None]
  - DYSPHAGIA [None]
  - CEREBRAL INFARCTION [None]
  - PNEUMOCONIOSIS [None]
  - COLITIS [None]
  - PNEUMONIA ASPIRATION [None]
